FAERS Safety Report 11145272 (Version 1)
Quarter: 2015Q2

REPORT INFORMATION
  Report Type: Spontaneous
  Country: DE (occurrence: DE)
  Receive Date: 20150528
  Receipt Date: 20150528
  Transmission Date: 20150821
  Serious: Yes (Other)
  Sender: FDA-Public Use
  Company Number: DE-SA-BMS12123402

PATIENT
  Sex: Male

DRUGS (1)
  1. COAPROVEL TABS 300MG/12.5MG [Suspect]
     Active Substance: HYDROCHLOROTHIAZIDE\IRBESARTAN
     Indication: HYPERTENSION
     Route: 048
     Dates: start: 20020727, end: 20021009

REACTIONS (21)
  - Dysphonia [Recovering/Resolving]
  - Tinnitus [Recovering/Resolving]
  - Constipation [Recovering/Resolving]
  - Dysphagia [Recovering/Resolving]
  - Chest pain [Recovering/Resolving]
  - Confusional state [Recovering/Resolving]
  - Dizziness [Recovering/Resolving]
  - Back pain [Recovering/Resolving]
  - Hypoaesthesia [Recovering/Resolving]
  - Headache [Recovering/Resolving]
  - Dyspnoea [Unknown]
  - Vomiting [Unknown]
  - Abdominal pain [Recovering/Resolving]
  - Mobility decreased [Unknown]
  - Fatigue [Unknown]
  - Pharyngeal oedema [Recovering/Resolving]
  - Muscle twitching [Recovering/Resolving]
  - Visual impairment [Recovering/Resolving]
  - Nervousness [Recovering/Resolving]
  - Musculoskeletal stiffness [Unknown]
  - Pain [Unknown]

NARRATIVE: CASE EVENT DATE: 2002
